FAERS Safety Report 8864111 (Version 1)
Quarter: 2012Q4

REPORT INFORMATION
  Report Type: 
  Country: US (occurrence: US)
  Receive Date: 20121024
  Receipt Date: 20121024
  Transmission Date: 20130627
  Serious: No
  Sender: FDA-Public Use
  Company Number: US-AMGEN-USASP2011065874

PATIENT
  Sex: Female

DRUGS (1)
  1. ENBREL [Suspect]
     Indication: RHEUMATOID ARTHRITIS
     Dosage: 50 mg, qwk
     Dates: start: 20090803, end: 20111130

REACTIONS (3)
  - Diplopia [Not Recovered/Not Resolved]
  - Eye disorder [Not Recovered/Not Resolved]
  - Herpes zoster [Not Recovered/Not Resolved]
